FAERS Safety Report 14658352 (Version 1)
Quarter: 2018Q1

REPORT INFORMATION
  Report Type: Spontaneous
  Country: IE (occurrence: IE)
  Receive Date: 20180320
  Receipt Date: 20180320
  Transmission Date: 20180509
  Serious: Yes (Death, Hospitalization)
  Sender: FDA-Public Use
  Company Number: PHHY2018IE046216

PATIENT
  Age: 56 Year
  Sex: Female

DRUGS (5)
  1. ACYCLOVIR. [Concomitant]
     Active Substance: ACYCLOVIR
     Indication: MYELITIS TRANSVERSE
     Dosage: UNK
     Route: 065
  2. METHYLPREDNISOLONE SODIUM SUCCINATE. [Suspect]
     Active Substance: METHYLPREDNISOLONE SODIUM SUCCINATE
     Indication: MYELITIS TRANSVERSE
     Dosage: UNK
     Route: 042
  3. CYCLOPHOSPHAMIDE. [Suspect]
     Active Substance: CYCLOPHOSPHAMIDE
     Indication: MYELITIS TRANSVERSE
     Dosage: 1200 MG, UNK (GIVEN 11 DAYS FOLLOWING ADMISSION)
     Route: 065
  4. DEXAMETHASONE SODIUM PHOSPHATE. [Suspect]
     Active Substance: DEXAMETHASONE SODIUM PHOSPHATE
     Indication: MYELITIS TRANSVERSE
     Dosage: 24 MG, DAILY
     Route: 042
  5. METHYLPREDNISOLONE SODIUM SUCCINATE. [Suspect]
     Active Substance: METHYLPREDNISOLONE SODIUM SUCCINATE
     Dosage: 1000 MG, UNK
     Route: 042

REACTIONS (7)
  - Myelopathy [Fatal]
  - Drug ineffective [Fatal]
  - Vasculitis [Fatal]
  - Renal necrosis [Fatal]
  - Necrosis [Fatal]
  - Haemorrhage [Fatal]
  - Respiratory failure [Fatal]
